FAERS Safety Report 16728351 (Version 1)
Quarter: 2019Q3

REPORT INFORMATION
  Report Type: Spontaneous
  Country: IT (occurrence: IT)
  Receive Date: 20190822
  Receipt Date: 20190822
  Transmission Date: 20191005
  Serious: Yes (Hospitalization)
  Sender: FDA-Public Use
  Company Number: IT-SA-2019SA224256

PATIENT
  Age: 41 Year
  Sex: Female

DRUGS (6)
  1. STILNOX [Suspect]
     Active Substance: ZOLPIDEM TARTRATE
     Indication: SEDATION
     Dosage: 100 MG, TOTAL
     Route: 065
     Dates: start: 20190624, end: 20190624
  2. BRINTELLIX [Concomitant]
     Active Substance: VORTIOXETINE HYDROBROMIDE
     Indication: BIPOLAR II DISORDER
     Dosage: 1 DF
     Route: 048
  3. LATUDA [Concomitant]
     Active Substance: LURASIDONE HYDROCHLORIDE
     Indication: BIPOLAR DISORDER
     Dosage: 1 DF
     Route: 048
  4. LITHIUM. [Concomitant]
     Active Substance: LITHIUM
     Indication: BIPOLAR DISORDER
     Dosage: 124.5 MG
     Route: 048
     Dates: start: 20180824
  5. CLONAZEPAM. [Suspect]
     Active Substance: CLONAZEPAM
     Indication: MALAISE
     Dosage: 50 MG, TOTAL
     Route: 048
     Dates: start: 20190624, end: 20190624
  6. LAMOTRIGINE. [Concomitant]
     Active Substance: LAMOTRIGINE
     Indication: BIPOLAR I DISORDER
     Dosage: 150 MG
     Route: 048
     Dates: start: 20180824

REACTIONS (4)
  - Feelings of worthlessness [Unknown]
  - Speech disorder [Unknown]
  - Drug abuse [Unknown]
  - Depressed mood [Unknown]

NARRATIVE: CASE EVENT DATE: 20190624
